FAERS Safety Report 8992640 (Version 1)
Quarter: 2013Q1

REPORT INFORMATION
  Report Type: Spontaneous
  Country: US (occurrence: US)
  Receive Date: 20130101
  Receipt Date: 20130101
  Transmission Date: 20140127
  Serious: Yes (Other)
  Sender: FDA-Public Use
  Company Number: PHEH2012US025277

PATIENT
  Sex: 0

DRUGS (1)
  1. COARTEM [Suspect]
     Indication: MALARIA
     Dosage: UNK

REACTIONS (1)
  - Papilloedema [Unknown]
